FAERS Safety Report 5385164-8 (Version None)
Quarter: 2007Q3

REPORT INFORMATION
  Report Type: 
  Country: None (occurrence: None)
  Receive Date: 20070712
  Receipt Date: 20070705
  Transmission Date: 20080115
  Serious: Yes (Hospitalization)
  Sender: FDA-Public Use
  Company Number: JP-AVENTIS-200711797JP

PATIENT

DRUGS (1)
  1. RILUTEK [Suspect]
     Route: 048
     Dates: start: 20070601, end: 20070701

REACTIONS (5)
  - BLOOD CREATINE PHOSPHOKINASE INCREASED [None]
  - ELECTROCARDIOGRAM ABNORMAL [None]
  - HEPATIC FUNCTION ABNORMAL [None]
  - PYREXIA [None]
  - RASH [None]
